FAERS Safety Report 14014529 (Version 3)
Quarter: 2017Q4

REPORT INFORMATION
  Report Type: Report from Study
  Country: None (occurrence: AU)
  Receive Date: 20170927
  Receipt Date: 20171006
  Transmission Date: 20180321
  Serious: Yes (Hospitalization)
  Sender: FDA-Public Use
  Company Number: AU-ABBVIE-17K-008-2111249-00

PATIENT
  Age: 79 Year
  Sex: Male

DRUGS (1)
  1. DUODOPA [Suspect]
     Active Substance: CARBIDOPA\LEVODOPA
     Indication: PARKINSON^S DISEASE
     Dosage: PEG-J 16HRS
     Route: 050
     Dates: start: 20160526

REACTIONS (5)
  - Staphylococcal infection [Unknown]
  - Squamous cell carcinoma of skin [Unknown]
  - General physical health deterioration [Recovering/Resolving]
  - Confusional state [Unknown]
  - Paranoia [Unknown]

NARRATIVE: CASE EVENT DATE: 201709
